FAERS Safety Report 18815914 (Version 1)
Quarter: 2021Q1

REPORT INFORMATION
  Report Type: Spontaneous
  Country: US (occurrence: US)
  Receive Date: 20210201
  Receipt Date: 20210201
  Transmission Date: 20210419
  Serious: Yes (Hospitalization, Disabling)
  Sender: FDA-Public Use
  Company Number: None

PATIENT
  Age: 22 Year
  Sex: Female
  Weight: 66.15 kg

DRUGS (2)
  1. SHAROBEL [Concomitant]
     Active Substance: NORETHINDRONE
  2. ETONOGESTREL/ETHINYL ESTRADIOL [Suspect]
     Active Substance: ETHINYL ESTRADIOL\ETONOGESTREL
     Indication: CONTRACEPTION
     Dosage: ?          QUANTITY:1 VAGINAL RING;OTHER FREQUENCY:ONCE/MONTH;?
     Route: 067
     Dates: start: 20200316, end: 20201120

REACTIONS (12)
  - Haematochezia [None]
  - Anxiety [None]
  - Muscle spasms [None]
  - Gastrointestinal disorder [None]
  - Diarrhoea [None]
  - Blood pressure decreased [None]
  - Chest pain [None]
  - Nausea [None]
  - Product substitution issue [None]
  - Vomiting [None]
  - Sleep disorder [None]
  - Weight decreased [None]

NARRATIVE: CASE EVENT DATE: 20200316
